FAERS Safety Report 15569281 (Version 1)
Quarter: 2018Q4

REPORT INFORMATION
  Report Type: Spontaneous
  Country: US (occurrence: US)
  Receive Date: 20181031
  Receipt Date: 20181031
  Transmission Date: 20190205
  Serious: Yes (Other)
  Sender: FDA-Public Use
  Company Number: US-AMGEN-USASP2018150416

PATIENT

DRUGS (1)
  1. AIMOVIG [Suspect]
     Active Substance: ERENUMAB-AOOE
     Indication: PRODUCT USED FOR UNKNOWN INDICATION
     Dosage: UNK
     Route: 058
     Dates: start: 2018, end: 2018

REACTIONS (12)
  - Hyperacusis [Unknown]
  - Gingival pain [Unknown]
  - Headache [Unknown]
  - Dizziness [Unknown]
  - Toothache [Unknown]
  - Confusional state [Unknown]
  - Feeling abnormal [Unknown]
  - Chest discomfort [Unknown]
  - Visual impairment [Unknown]
  - Abnormal dreams [Unknown]
  - Oral pain [Unknown]
  - Facial pain [Unknown]

NARRATIVE: CASE EVENT DATE: 2018
